FAERS Safety Report 6855755-3 (Version None)
Quarter: 2010Q3

REPORT INFORMATION
  Report Type: 
  Country: None (occurrence: None)
  Receive Date: 20100719
  Receipt Date: 20100707
  Transmission Date: 20110219
  Serious: Yes (Other)
  Sender: FDA-Public Use
  Company Number: FR-ELI_LILLY_AND_COMPANY-FR201005002383

PATIENT
  Age: 71 Year
  Sex: Female

DRUGS (8)
  1. FORTEO [Suspect]
     Indication: OSTEOPOROSIS
     Dosage: 20 UG, DAILY (1/D)
     Route: 065
     Dates: start: 20090310
  2. AMLOR [Concomitant]
     Dosage: UNK, UNKNOWN
     Route: 065
  3. KARDEGIC [Concomitant]
     Dosage: UNK, UNKNOWN
     Route: 065
  4. PREVISCAN [Concomitant]
     Dosage: UNK, UNKNOWN
     Route: 065
  5. CORVASAL [Concomitant]
     Dosage: UNK, UNKNOWN
     Route: 065
  6. MICARDIS [Concomitant]
     Dosage: UNK, UNKNOWN
     Route: 065
  7. LASIX [Concomitant]
     Dosage: UNK, UNKNOWN
     Route: 065
  8. OMEPRAZOLE [Concomitant]
     Dosage: UNK, UNKNOWN
     Route: 065

REACTIONS (1)
  - ARTERIAL THROMBOSIS LIMB [None]
